FAERS Safety Report 25244528 (Version 1)
Quarter: 2025Q2

REPORT INFORMATION
  Report Type: Spontaneous
  Country: CO (occurrence: CO)
  Receive Date: 20250428
  Receipt Date: 20250428
  Transmission Date: 20250716
  Serious: No
  Sender: ALKEM
  Company Number: CO-ALKEM LABORATORIES LIMITED-CO-ALKEM-2024-24105

PATIENT
  Age: 19 Year
  Sex: Male

DRUGS (3)
  1. SIROLIMUS [Suspect]
     Active Substance: SIROLIMUS
     Indication: Gorham^s disease
     Dosage: 2 MILLIGRAM, QD
     Route: 065
  2. SIROLIMUS [Suspect]
     Active Substance: SIROLIMUS
     Indication: Lymphangioma
     Dosage: 4 MILLIGRAM, QD
     Route: 065
  3. SIROLIMUS [Suspect]
     Active Substance: SIROLIMUS
     Indication: Chylothorax
     Dosage: 2 MILLIGRAM, QD, DOSE DCREASED
     Route: 065

REACTIONS (1)
  - Acne [Recovering/Resolving]
